FAERS Safety Report 13518040 (Version 2)
Quarter: 2017Q3

REPORT INFORMATION
  Report Type: Spontaneous
  Country: US (occurrence: US)
  Receive Date: 20170505
  Receipt Date: 20170802
  Transmission Date: 20171127
  Serious: Yes (Other)
  Sender: FDA-Public Use
  Company Number: US-BAYER-2017-080068

PATIENT
  Age: 62 Year
  Sex: Female
  Weight: 74.97 kg

DRUGS (4)
  1. MIRALAX [Suspect]
     Active Substance: POLYETHYLENE GLYCOL 3350
     Indication: GASTROINTESTINAL DISORDER
     Dosage: 17 G WITH 80Z OF WATER
     Route: 048
     Dates: start: 201512, end: 2016
  2. MIRAFIBER SUGAR FREE ORANGE POWDER [Suspect]
     Active Substance: METHYLCELLULOSES
     Indication: GASTROINTESTINAL DISORDER
     Dosage: 1 DF, OM
     Route: 048
     Dates: start: 201611, end: 2016
  3. MIRALAX [Suspect]
     Active Substance: POLYETHYLENE GLYCOL 3350
     Indication: CONSTIPATION
  4. MIRAFIBER SUGAR FREE ORANGE POWDER [Suspect]
     Active Substance: METHYLCELLULOSES
     Indication: CONSTIPATION

REACTIONS (6)
  - Endometrial cancer stage III [Recovered/Resolved]
  - Off label use [Unknown]
  - Incorrect drug administration duration [Unknown]
  - Muscle spasms [Recovered/Resolved]
  - Rectal haemorrhage [Recovered/Resolved]
  - Intestinal adenocarcinoma [Recovered/Resolved]

NARRATIVE: CASE EVENT DATE: 201601
